FAERS Safety Report 5087092-4 (Version None)
Quarter: 2006Q3

REPORT INFORMATION
  Report Type: 
  Country: None (occurrence: None)
  Receive Date: 20060821
  Receipt Date: 20060808
  Transmission Date: 20061208
  Serious: Yes (Other)
  Sender: FDA-Public Use
  Company Number: 2006098361

PATIENT
  Age: 68 Year
  Sex: Female
  Weight: 78.4723 kg

DRUGS (4)
  1. BEXTRA [Suspect]
     Indication: ARTHRITIS
     Dosage: 10 MG (10 MG, 1 IN 1 D)
  2. SYNTHROID [Concomitant]
  3. HYDROCHLOROTHIAZIDE [Concomitant]
  4. TOPROL-XL [Concomitant]

REACTIONS (8)
  - BLISTER [None]
  - CARDIAC DISORDER [None]
  - DRY SKIN [None]
  - DYSURIA [None]
  - HEADACHE [None]
  - HYPERTENSION [None]
  - PAIN IN EXTREMITY [None]
  - SKIN DISORDER [None]
